FAERS Safety Report 9012679 (Version 2)
Quarter: 2013Q1

REPORT INFORMATION
  Report Type: Report from Study
  Country: GB (occurrence: GB)
  Receive Date: 20130114
  Receipt Date: 20130123
  Transmission Date: 20140127
  Serious: Yes (Hospitalization)
  Sender: FDA-Public Use
  Company Number: GB-VERTEX PHARMACEUTICALS INC.-2013-000560

PATIENT
  Age: 50 Year
  Sex: Male
  Weight: 54 kg

DRUGS (20)
  1. VX-950 (TELAPREVIR) [Suspect]
     Indication: PRODUCT USED FOR UNKNOWN INDICATION
     Dosage: 750 MG, TID
     Dates: start: 20121114
  2. COPEGUS [Suspect]
     Indication: HEPATITIS C
     Dosage: DOSAGE FORM: TABLET, 400 MG IN THE MORNING AND 200 MG IN THE EVENING
     Route: 048
     Dates: start: 20130110
  3. COPEGUS [Suspect]
     Dosage: DOSAGE FORM: TABLET, 400 MG IN THE MORNING AND 600 MG IN THE EVENING
     Route: 048
     Dates: start: 20121114, end: 20130105
  4. PEGASYS [Suspect]
     Indication: HEPATITIS C
     Dosage: DOSAGE FORM: INJECTION
     Route: 058
     Dates: start: 20121114
  5. RITONAVIR [Concomitant]
     Dosage: DOSAGE FORM: TABLET
     Route: 048
  6. TRUVADA [Concomitant]
     Dosage: 200 MG/ 245 MG
     Route: 048
  7. GABAPENTIN [Concomitant]
     Dosage: DOSAGE FORM: CAPSULE
     Route: 048
  8. CLENIL MODULITE [Concomitant]
     Dosage: 2 DF, BID
     Route: 055
  9. SALBUTAMOL [Concomitant]
     Dosage: 100 UG AS NEEDED
     Route: 055
  10. ADCAL-D3 [Concomitant]
     Dosage: DOSAGE FORM: CHEWABLE TABLET
     Route: 048
  11. ALENDRONATE [Concomitant]
     Dosage: DOSAGE FORM: TABLET
     Route: 048
  12. ATAZANAVIR [Concomitant]
     Dosage: DOSAGE FORM: CAPSULE
     Route: 048
  13. ZOPICLONE [Concomitant]
     Dosage: DOSAGE FORM: TABLET, AS NEEDED
     Route: 048
  14. LACRI-LUBE OINTMENT [Concomitant]
     Dosage: 1 DF, BID
     Route: 047
  15. ENSURE PLUS [Concomitant]
     Dosage: DOSAGE FORM: LIQUID
     Route: 048
  16. ENSURE [Concomitant]
     Dosage: 1 DF, QD
     Route: 048
  17. DERMOL 500 [Concomitant]
     Dosage: UNK, BID
     Route: 061
  18. TRIMOVATE [Concomitant]
     Dosage: DOSAGE FORM: CREAM
     Route: 061
  19. CYCLIZINE [Concomitant]
     Dosage: DOSAGE FORM: TABLET, AS NEEDED
     Route: 048
  20. METOCLOPRAMIDE [Concomitant]
     Dosage: DOSAGE FORM: TABLET, AS NEEDED
     Route: 048

REACTIONS (7)
  - Depressed mood [Recovered/Resolved]
  - Gastroenteritis [Recovered/Resolved]
  - Fatigue [Recovered/Resolved]
  - Diarrhoea [Recovered/Resolved]
  - Vomiting [Recovered/Resolved]
  - Hypokalaemia [Recovered/Resolved]
  - Anaemia [Recovered/Resolved]
